FAERS Safety Report 19737648 (Version 1)
Quarter: 2021Q3

REPORT INFORMATION
  Report Type: Spontaneous
  Country: DE (occurrence: DE)
  Receive Date: 20210823
  Receipt Date: 20210823
  Transmission Date: 20211014
  Serious: Yes (Death, Other)
  Sender: FDA-Public Use
  Company Number: DE-MYLANLABS-2021M1053372

PATIENT
  Age: 42 Year
  Sex: Male

DRUGS (3)
  1. ETOPOSIDE. [Suspect]
     Active Substance: ETOPOSIDE
     Indication: TESTICULAR EMBRYONAL CARCINOMA
     Dosage: 2 UNK, CYCLE, UNK, CYCLIC; 2 CYCLES
  2. CISPLATIN. [Suspect]
     Active Substance: CISPLATIN
     Indication: TESTICULAR EMBRYONAL CARCINOMA
     Dosage: 2 UNK, CYCLE, UNK, CYCLIC; 2 CYCLES
  3. BLEOMYCIN [Suspect]
     Active Substance: BLEOMYCIN SULFATE
     Indication: TESTICULAR EMBRYONAL CARCINOMA
     Dosage: 2 UNK, CYCLE, UNK, CYCLIC; 2 CYCLES

REACTIONS (1)
  - Cerebrovascular accident [Fatal]
